FAERS Safety Report 9104256 (Version 3)
Quarter: 2013Q2

REPORT INFORMATION
  Report Type: Spontaneous
  Country: FR (occurrence: FR)
  Receive Date: 20130219
  Receipt Date: 20130609
  Transmission Date: 20140414
  Serious: Yes (Disabling, Other)
  Sender: FDA-Public Use
  Company Number: PHHY2013FR015221

PATIENT
  Age: 60 Year
  Sex: Female

DRUGS (10)
  1. ACLASTA [Suspect]
     Indication: OSTEOPOROSIS
     Dosage: UNK
     Route: 042
     Dates: start: 20130115
  2. CARDENSIEL [Concomitant]
     Indication: HYPERTENSION
     Dosage: 5 MG, UNK
  3. CARDENSIEL [Concomitant]
     Dosage: 10 MG, QD
  4. PLAQUENIL [Concomitant]
     Indication: RHEUMATOID ARTHRITIS
     Dosage: 3 A WEEK
  5. PARACETAMOL [Concomitant]
     Dosage: 4 G, QD
  6. SEVIKAR [Concomitant]
     Indication: HYPERTENSION
     Dosage: 40MG/5MG, QD
     Route: 048
  7. SERESTA [Concomitant]
  8. NOCTAMIDE [Concomitant]
     Indication: SLEEP DISORDER
     Dosage: 2 MG, QD
     Route: 048
  9. NOCTAMIDE [Concomitant]
     Indication: FATIGUE
  10. CACIT D3 [Concomitant]
     Indication: OSTEOPOROSIS
     Dosage: 1000MG/880 IU, QD
     Route: 048

REACTIONS (12)
  - Gait disturbance [Not Recovered/Not Resolved]
  - Paraesthesia [Not Recovered/Not Resolved]
  - Pain in extremity [Not Recovered/Not Resolved]
  - Influenza like illness [Not Recovered/Not Resolved]
  - Balance disorder [Not Recovered/Not Resolved]
  - Arthralgia [Not Recovered/Not Resolved]
  - Pain [Not Recovered/Not Resolved]
  - Asthenia [Not Recovered/Not Resolved]
  - C-reactive protein increased [Not Recovered/Not Resolved]
  - Fatigue [Not Recovered/Not Resolved]
  - Diarrhoea [Recovered/Resolved]
  - Vertigo [Unknown]
